FAERS Safety Report 5107553-9 (Version None)
Quarter: 2006Q3

REPORT INFORMATION
  Report Type: 
  Country: None (occurrence: None)
  Receive Date: 20060731
  Receipt Date: 20060408
  Transmission Date: 20061208
  Serious: No
  Sender: FDA-Public Use
  Company Number: 2006PV011714

PATIENT
  Age: 78 Year
  Sex: Male
  Weight: 114.76 kg

DRUGS (1)
  1. BYETTA [Suspect]
     Indication: DIABETES MELLITUS NON-INSULIN-DEPENDENT
     Dosage: 5 MCG; BID; SC
     Route: 058
     Dates: start: 20060301, end: 20060405

REACTIONS (2)
  - NAUSEA [None]
  - WEIGHT DECREASED [None]
